FAERS Safety Report 17274033 (Version 1)
Quarter: 2020Q1

REPORT INFORMATION
  Report Type: Other
  Country: EG (occurrence: EG)
  Receive Date: 20200115
  Receipt Date: 20200115
  Transmission Date: 20200409
  Serious: Yes (Death)
  Sender: FDA-Public Use
  Company Number: EG-AGG-08-2019-2089

PATIENT

DRUGS (10)
  1. CLOPIDOGREL [Concomitant]
     Active Substance: CLOPIDOGREL BISULFATE
     Dosage: DAPT LOADING DOSE
  2. ACETYLSALICYLIC ACID [Concomitant]
     Active Substance: ASPIRIN
     Dosage: DAPT MAINTENANCE DOSE (DOSE UNKNOWN)
  3. CLOPIDOGREL [Concomitant]
     Active Substance: CLOPIDOGREL BISULFATE
     Dosage: DAPT MAINTENANCE DOSE
  4. HIGH INTENSITY STATIN (NOT SPECIFIED) [Concomitant]
     Dosage: HIGH INTENSITY STATIN
  5. AGGRASTAT [Suspect]
     Active Substance: TIROFIBAN HYDROCHLORIDE
     Indication: ANTIPLATELET THERAPY
     Route: 041
  6. AGGRASTAT [Suspect]
     Active Substance: TIROFIBAN HYDROCHLORIDE
     Indication: ANTIPLATELET THERAPY
     Dosage: LOADING DOSE
     Route: 040
  7. ACETYLSALICYLIC ACID [Concomitant]
     Active Substance: ASPIRIN
     Dosage: DAPT LOADING DOSE
  8. HEPARIN [Concomitant]
     Active Substance: HEPARIN SODIUM
     Dosage: WEIGHT ADJUSTED UNFRACTIONED HEPARIN TO ACHEIVE APPROX. 250 SEC ACT
  9. HEPARIN [Concomitant]
     Active Substance: HEPARIN SODIUM
     Dosage: 70-100 IU/KG UNFRACTIONATED HEPARIN IV BOLUS
     Route: 040
  10. BLOOD PRESSURE MEDICATION (NOT SPECIFIED) [Concomitant]
     Dosage: BETA-BLOCKER AND AN ANGIOTENSIN CONVERTING ENZYME INHIBITOR OR ANGIOTENSIN II RECEPTOR

REACTIONS (1)
  - Cardiac death [Fatal]
